FAERS Safety Report 23704876 (Version 4)
Quarter: 2025Q2

REPORT INFORMATION
  Report Type: Report from Study
  Country: FR (occurrence: FR)
  Receive Date: 20240404
  Receipt Date: 20250619
  Transmission Date: 20250717
  Serious: Yes (Hospitalization)
  Sender: TAKEDA
  Company Number: FR-TAKEDA-2024TUS030569

PATIENT
  Age: 79 Year
  Sex: Female

DRUGS (21)
  1. TEDUGLUTIDE [Suspect]
     Active Substance: TEDUGLUTIDE
     Indication: Short-bowel syndrome
     Dosage: 3 MILLIGRAM, QD
     Dates: start: 20160326, end: 20160524
  2. TEDUGLUTIDE [Suspect]
     Active Substance: TEDUGLUTIDE
     Dosage: 1.5 MILLIGRAM, QD
     Dates: start: 20160525, end: 20190716
  3. TEDUGLUTIDE [Suspect]
     Active Substance: TEDUGLUTIDE
     Dosage: 1.7 MILLIGRAM, QD
     Dates: start: 20190717, end: 20191028
  4. TEDUGLUTIDE [Suspect]
     Active Substance: TEDUGLUTIDE
     Dosage: 1.8 MILLIGRAM, QD
     Dates: start: 20191029, end: 20210201
  5. TEDUGLUTIDE [Suspect]
     Active Substance: TEDUGLUTIDE
     Dosage: 1.9 MILLIGRAM, QD
     Dates: start: 20210202, end: 202104
  6. TEDUGLUTIDE [Suspect]
     Active Substance: TEDUGLUTIDE
     Dosage: 1.9 MILLIGRAM, QD
     Dates: start: 20210405
  7. ERYTHROPOIETIN [Concomitant]
     Active Substance: ERYTHROPOIETIN
     Indication: Anaemia
  8. ACEBUTOLOL [Concomitant]
     Active Substance: ACEBUTOLOL
     Indication: Prophylaxis
     Dosage: 100 MILLIGRAM, BID
  9. TRAMADOL HYDROCHLORIDE [Concomitant]
     Active Substance: TRAMADOL HYDROCHLORIDE
     Indication: Prophylaxis
     Dosage: 150 MILLIGRAM, BID
  10. AMLODIPINE BESYLATE [Concomitant]
     Active Substance: AMLODIPINE BESYLATE
     Indication: Prophylaxis
     Dosage: 10 MILLIGRAM, QD
  11. FUROSEMIDE [Concomitant]
     Active Substance: FUROSEMIDE
     Indication: Prophylaxis
     Dosage: 20 MILLIGRAM, QD
  12. ESOMEPRAZOLE [Concomitant]
     Active Substance: ESOMEPRAZOLE
     Indication: Prophylaxis
     Dosage: 40 MILLIGRAM, QD
  13. LEVOMEPROMAZINE [Concomitant]
     Active Substance: LEVOMEPROMAZINE
     Indication: Prophylaxis
     Dosage: 35 GTT DROPS, QD
  14. URSODIOL [Concomitant]
     Active Substance: URSODIOL
     Indication: Prophylaxis
     Dosage: 200 MILLIGRAM, BID
  15. MOVICOL [Concomitant]
     Active Substance: POLYETHYLENE GLYCOL 3350\POTASSIUM CHLORIDE\SODIUM BICARBONATE\SODIUM CHLORIDE
     Indication: Prophylaxis
     Dosage: UNK UNK, QD
  16. ACUPAN [Concomitant]
     Active Substance: NEFOPAM HYDROCHLORIDE
     Indication: Prophylaxis
     Dosage: 40 MILLIGRAM, QD
  17. SODIUM BICARBONATE [Concomitant]
     Active Substance: SODIUM BICARBONATE
     Indication: Prophylaxis
  18. CHOLECALCIFEROL [Concomitant]
     Active Substance: CHOLECALCIFEROL
     Indication: Prophylaxis
  19. LYRICA [Concomitant]
     Active Substance: PREGABALIN
     Indication: Prophylaxis
  20. FUROSEMIDE [Concomitant]
     Active Substance: FUROSEMIDE
     Indication: Prophylaxis
     Dosage: 120 MILLIGRAM, QD
  21. FUROSEMIDE [Concomitant]
     Active Substance: FUROSEMIDE
     Dosage: 80 MILLIGRAM, QD

REACTIONS (2)
  - Gastrointestinal stoma output increased [Recovered/Resolved]
  - Dysphagia [Recovered/Resolved]

NARRATIVE: CASE EVENT DATE: 20231114
